FAERS Safety Report 7934870 (Version 3)
Quarter: 2012Q4

REPORT INFORMATION
  Report Type: 
  Country: US (occurrence: US)
  Receive Date: 20110509
  Receipt Date: 20121220
  Transmission Date: 20130627
  Serious: Yes (Other)
  Sender: FDA-Public Use
  Company Number: US-US-EMD SERONO, INC.-7056942

PATIENT
  Age: 55 None
  Sex: Female

DRUGS (3)
  1. REBIF [Suspect]
     Indication: MULTIPLE SCLEROSIS
     Route: 058
     Dates: start: 20060111, end: 201104
  2. REBIF [Suspect]
     Route: 058
     Dates: start: 201104
  3. REBIF [Suspect]
     Route: 058

REACTIONS (5)
  - Thyrotoxic crisis [Recovered/Resolved]
  - Pancreatic insufficiency [Unknown]
  - Hepatic failure [Unknown]
  - Hyperthyroidism [Recovered/Resolved]
  - Liver function test abnormal [Recovered/Resolved]
